FAERS Safety Report 14695250 (Version 2)
Quarter: 2018Q2

REPORT INFORMATION
  Report Type: Report from Study
  Country: US (occurrence: US)
  Receive Date: 20180329
  Receipt Date: 20180409
  Transmission Date: 20180711
  Serious: Yes (Death, Hospitalization)
  Sender: FDA-Public Use
  Company Number: US-ACTELION-A-US2018-168682

PATIENT
  Age: 31 Year
  Sex: Female

DRUGS (1)
  1. OPSUMIT [Suspect]
     Active Substance: MACITENTAN
     Indication: PULMONARY ARTERIAL HYPERTENSION
     Dosage: 10 MG, QD
     Route: 048
     Dates: start: 20150622

REACTIONS (6)
  - Staphylococcal bacteraemia [Fatal]
  - Device related infection [Fatal]
  - Pulmonary arterial hypertension [Unknown]
  - Septic shock [Fatal]
  - Cardiogenic shock [Fatal]
  - Condition aggravated [Unknown]
